FAERS Safety Report 14288468 (Version 3)
Quarter: 2018Q1

REPORT INFORMATION
  Report Type: Spontaneous
  Country: RU (occurrence: RU)
  Receive Date: 20171214
  Receipt Date: 20180122
  Transmission Date: 20180509
  Serious: Yes (Life-Threatening, Hospitalization, Other)
  Sender: FDA-Public Use
  Company Number: RU-ABBVIE-17K-251-2192501-00

PATIENT
  Age: 40 Year
  Sex: Female
  Weight: 82 kg

DRUGS (2)
  1. HUMIRA [Suspect]
     Active Substance: ADALIMUMAB
     Indication: UVEITIS
  2. HUMIRA [Suspect]
     Active Substance: ADALIMUMAB
     Indication: ANKYLOSING SPONDYLITIS
     Route: 058
     Dates: start: 20171204, end: 20171204

REACTIONS (9)
  - Urticaria [Recovered/Resolved]
  - Dysphonia [Recovered/Resolved]
  - Angioedema [Recovered/Resolved]
  - HLA marker study positive [Unknown]
  - Injection site erythema [Recovered/Resolved]
  - Red blood cell sedimentation rate decreased [Unknown]
  - Injection site extravasation [Recovering/Resolving]
  - Pharyngeal paraesthesia [Recovered/Resolved]
  - Injection site papule [Recovered/Resolved]

NARRATIVE: CASE EVENT DATE: 201712
